FAERS Safety Report 12268914 (Version 1)
Quarter: 2016Q2

REPORT INFORMATION
  Report Type: Report from Study
  Country: US (occurrence: US)
  Receive Date: 20160414
  Receipt Date: 20160414
  Transmission Date: 20160815
  Serious: Yes (Death, Other)
  Sender: FDA-Public Use
  Company Number: US-GILEAD-2016-0207837

PATIENT
  Age: 79 Year
  Sex: Female

DRUGS (15)
  1. ALENDRONATE ACCORD [Concomitant]
  2. RESTASIS [Concomitant]
     Active Substance: CYCLOSPORINE
  3. MELATONIN                          /07129401/ [Concomitant]
  4. AMBRISENTAN [Suspect]
     Active Substance: AMBRISENTAN
     Indication: PULMONARY ARTERIAL HYPERTENSION
     Dosage: 5 MG, QD
     Route: 065
     Dates: start: 20100727, end: 20160406
  5. SPIRONOLACTONE. [Concomitant]
     Active Substance: SPIRONOLACTONE
  6. ADEMPAS [Concomitant]
     Active Substance: RIOCIGUAT
  7. CEVIMELINE. [Concomitant]
     Active Substance: CEVIMELINE
  8. MEGESTROL                          /00082602/ [Concomitant]
  9. OMEPRAZOLE. [Concomitant]
     Active Substance: OMEPRAZOLE
  10. WARFARIN                           /00014802/ [Concomitant]
     Active Substance: WARFARIN
  11. FOLIC ACID ALMUS [Concomitant]
     Active Substance: FOLIC ACID
  12. PREDNISOLONE                       /00016202/ [Concomitant]
     Active Substance: PREDNISOLONE
  13. CALCIUM [Concomitant]
     Active Substance: CALCIUM
  14. LASIX [Concomitant]
     Active Substance: FUROSEMIDE
  15. POTASSIUM CHLORIDE. [Concomitant]
     Active Substance: POTASSIUM CHLORIDE

REACTIONS (1)
  - Death [Fatal]

NARRATIVE: CASE EVENT DATE: 20160406
